FAERS Safety Report 10237505 (Version 1)
Quarter: 2014Q2

REPORT INFORMATION
  Report Type: Spontaneous
  Country: SE (occurrence: SE)
  Receive Date: 20140615
  Receipt Date: 20140615
  Transmission Date: 20141212
  Serious: Yes (Life-Threatening, Other)
  Sender: FDA-Public Use
  Company Number: SE-BRISTOL-MYERS SQUIBB COMPANY-20956876

PATIENT
  Age: 72 Year
  Sex: Female

DRUGS (10)
  1. ELIQUIS [Suspect]
     Indication: ATRIAL FIBRILLATION
     Dosage: FILM-COATED TABLET
     Route: 048
  2. ALVEDON [Concomitant]
  3. BEHEPAN [Concomitant]
  4. CANDESARTAN [Concomitant]
  5. CILAXORAL [Concomitant]
  6. LACTULOSE [Concomitant]
  7. METOPROLOL [Concomitant]
  8. MIRTAZAPINE [Concomitant]
  9. OMEPRAZOLE [Concomitant]
  10. FRAGMIN [Concomitant]
     Dosage: 1DF: 2500 UNITS X 2

REACTIONS (3)
  - Cerebral haemorrhage [Not Recovered/Not Resolved]
  - Fall [Unknown]
  - Hip fracture [Unknown]
